FAERS Safety Report 9528505 (Version 2)
Quarter: 2013Q4

REPORT INFORMATION
  Report Type: Spontaneous
  Country: AR (occurrence: AR)
  Receive Date: 20130917
  Receipt Date: 20131202
  Transmission Date: 20140711
  Serious: Yes (Disabling, Other)
  Sender: FDA-Public Use
  Company Number: AR-PFIZER INC-2013261214

PATIENT
  Age: 69 Year
  Sex: Female

DRUGS (10)
  1. RAPAMUNE [Suspect]
     Dosage: 1 MG, 1X/DAY
     Dates: start: 20120123
  2. RAPAMUNE [Suspect]
     Dosage: 3 MG, UNK
  3. DELTISONA B [Concomitant]
  4. IRON [Concomitant]
  5. MAGNESIUM [Concomitant]
  6. FOLIC ACID [Concomitant]
  7. PROGRAF [Concomitant]
  8. ATENOLOL [Concomitant]
  9. JANUVIA [Concomitant]
  10. LOSARTAN POTASSIUM [Concomitant]

REACTIONS (19)
  - Gait disturbance [Recovered/Resolved]
  - Spinal disorder [Recovered/Resolved]
  - Immunodeficiency [Not Recovered/Not Resolved]
  - Hypoacusis [Unknown]
  - Oedema peripheral [Recovered/Resolved]
  - Influenza [Recovered/Resolved]
  - Otorrhoea [Not Recovered/Not Resolved]
  - Oropharyngeal pain [Not Recovered/Not Resolved]
  - Chest pain [Not Recovered/Not Resolved]
  - Hypersensitivity [Not Recovered/Not Resolved]
  - Eye discharge [Not Recovered/Not Resolved]
  - Pyrexia [Not Recovered/Not Resolved]
  - Viral infection [Not Recovered/Not Resolved]
  - Nasal congestion [Unknown]
  - Dyspnoea [Not Recovered/Not Resolved]
  - Cough [Not Recovered/Not Resolved]
  - Conjunctivitis [Unknown]
  - Diarrhoea [Recovered/Resolved]
  - Off label use [Unknown]
